FAERS Safety Report 8597595-3 (Version None)
Quarter: 2012Q3

REPORT INFORMATION
  Report Type: 
  Country: None (occurrence: None)
  Receive Date: 20120816
  Receipt Date: 20120808
  Transmission Date: 20120928
  Serious: Yes (Hospitalization)
  Sender: FDA-Public Use
  Company Number: US-BAYER-2012-081519

PATIENT
  Age: 16 Year
  Sex: Female
  Weight: 61 kg

DRUGS (6)
  1. YAZ [Suspect]
     Indication: POLYCYSTIC OVARIES
  2. IBUPROFEN [Concomitant]
     Dosage: UNK UNK, PRN
     Route: 048
  3. YASMIN [Suspect]
  4. FLONASE [Concomitant]
     Dosage: UNK UNK, PRN
     Route: 045
  5. YAZ [Suspect]
     Indication: HIRSUTISM
  6. YAZ [Suspect]
     Indication: MENSTRUATION IRREGULAR

REACTIONS (1)
  - PULMONARY EMBOLISM [None]
